FAERS Safety Report 13077693 (Version 1)
Quarter: 2017Q1

REPORT INFORMATION
  Report Type: Spontaneous
  Country: GB (occurrence: GB)
  Receive Date: 20170101
  Receipt Date: 20170101
  Transmission Date: 20170428
  Serious: Yes (Hospitalization)
  Sender: FDA-Public Use
  Company Number: GB-DEXPHARM-20162491

PATIENT
  Age: 81 Year
  Sex: Female

DRUGS (5)
  1. MIRTAZAPINE. [Suspect]
     Active Substance: MIRTAZAPINE
     Dosage: AT NIGHT. LONGSTANDING.
     Dates: start: 201512
  2. OMEPRAZOLE. [Suspect]
     Active Substance: OMEPRAZOLE
     Dosage: IN THE MORNING. LONGSTANDING.
     Dates: start: 201512
  3. FLUPENTIXOL [Suspect]
     Active Substance: FLUPENTIXOL
     Dosage: IN THE MORNING.
     Route: 048
     Dates: start: 201512
  4. FLUPENTIXOL [Suspect]
     Active Substance: FLUPENTIXOL
     Dosage: IN THE EVENING. LONGSTANDING.
     Route: 048
     Dates: start: 201606
  5. DIAZEPAM. [Suspect]
     Active Substance: DIAZEPAM
     Dosage: IN THE MORNING. LONGSTANDING.
     Route: 048
     Dates: start: 201512

REACTIONS (1)
  - Jaundice [Unknown]

NARRATIVE: CASE EVENT DATE: 201611
